FAERS Safety Report 4436694-4 (Version None)
Quarter: 2004Q3

REPORT INFORMATION
  Report Type: 
  Country: None (occurrence: None)
  Receive Date: 20040827
  Receipt Date: 20040827
  Transmission Date: 20050211
  Serious: Yes (Hospitalization)
  Sender: FDA-Public Use
  Company Number: None

PATIENT
  Age: 39 Year
  Sex: Female
  Weight: 68.0396 kg

DRUGS (3)
  1. IMITREX [Suspect]
     Dosage: 100 MG , ORAL ONCE A DAY
     Route: 048
     Dates: start: 20040807
  2. IMITREX [Suspect]
     Dosage: 100 MG , ORAL ONCE A DAY
     Route: 048
     Dates: start: 20040810
  3. IMITREX [Suspect]
     Dosage: 100 MG, ORAL ONCE A DAY
     Route: 048
     Dates: start: 20040817

REACTIONS (2)
  - CHEST PAIN [None]
  - PYREXIA [None]
